FAERS Safety Report 18486327 (Version 1)
Quarter: 2020Q4

REPORT INFORMATION
  Report Type: Spontaneous
  Country: NL (occurrence: NL)
  Receive Date: 20201110
  Receipt Date: 20201110
  Transmission Date: 20210114
  Serious: Yes (Hospitalization)
  Sender: FDA-Public Use
  Company Number: NL-TEVA-2020-NL-1845977

PATIENT
  Age: 76 Year
  Sex: Female

DRUGS (9)
  1. DABIGATRAN ETEXILAAT CAPSULE 110MG / PRADAXA CAPSULE 110MG [Concomitant]
     Dosage: THERAPY START DATE AND END DATE : ASKU
  2. SALBUTAMOL INHALATIEPOEDER 200UG/DO / VENTOLIN DISKUS INHPDR 200MCG 60 [Concomitant]
     Dosage: THERAPY START DATE AND END DATE : ASKU
  3. METFORMINE TABLET   500MG / BRAND NAME NOT SPECIFIED [Concomitant]
     Active Substance: METFORMIN HYDROCHLORIDE
     Dosage: THERAPY START DATE AND END DATE : ASKU
  4. METHOTREXAAT TABLET  2,5MG / BRAND NAME NOT SPECIFIED [Suspect]
     Active Substance: METHOTREXATE SODIUM
     Indication: RHEUMATOID ARTHRITIS
     Dosage: 1X PER WEEK 6 TABL V 2.5MG, UNIT DOSE : 15 MG
     Dates: start: 20200603
  5. FOLIUMZUUR TABLET 5MG / BRAND NAME NOT SPECIFIED [Concomitant]
     Dosage: THERAPY START DATE AND END DATE : ASKU
  6. MACROGOL POEDER V DRANK 10G / BRAND NAME NOT SPECIFIED [Concomitant]
     Dosage: THERAPY START DATE AND END DATE : ASKU
  7. ETORICOXIB TABLET FO  60MG / BRAND NAME NOT SPECIFIED [Concomitant]
     Dosage: THERAPY START DATE AND END DATE : ASKU
  8. FLECAINIDE CAPSULE MGA  50MG / BRAND NAME NOT SPECIFIED [Concomitant]
     Dosage: THERAPY START DATE AND END DATE : ASKU
  9. ISOSORBIDEMONONITRAAT TABLET MGA  30MG / PROMOCARD DURETTE TABLET MGA [Concomitant]
     Dosage: THERAPY START DATE AND END DATE : ASKU

REACTIONS (4)
  - Dyspepsia [Recovered/Resolved]
  - Depressed level of consciousness [Recovered/Resolved]
  - Nausea [Recovered/Resolved]
  - Dizziness [Recovered/Resolved]

NARRATIVE: CASE EVENT DATE: 20200603
